FAERS Safety Report 10474295 (Version 1)
Quarter: 2014Q3

REPORT INFORMATION
  Report Type: Spontaneous
  Country: US (occurrence: US)
  Receive Date: 20140924
  Receipt Date: 20140924
  Transmission Date: 20150326
  Serious: No
  Sender: FDA-Public Use
  Company Number: US-GLAXOSMITHKLINE-A1076301A

PATIENT
  Sex: Female

DRUGS (1)
  1. SUMATRIPTAN [Suspect]
     Active Substance: SUMATRIPTAN
     Indication: PRODUCT USED FOR UNKNOWN INDICATION
     Route: 065
     Dates: start: 20140602

REACTIONS (4)
  - Drug ineffective [Unknown]
  - Off label use [Unknown]
  - Dysgeusia [Unknown]
  - Drug administration error [Unknown]

NARRATIVE: CASE EVENT DATE: 20140602
